FAERS Safety Report 9066966 (Version 1)
Quarter: 2013Q1

REPORT INFORMATION
  Report Type: Report from Study
  Country: US (occurrence: US)
  Receive Date: 20130128
  Receipt Date: 20130128
  Transmission Date: 20140127
  Serious: No
  Sender: FDA-Public Use
  Company Number: US-ABBOTT-12P-163-0911726-00

PATIENT
  Sex: Male

DRUGS (10)
  1. HUMIRA 40 MG/0.8 ML PEN [Suspect]
     Indication: RHEUMATOID ARTHRITIS
     Route: 058
     Dates: start: 201107, end: 201111
  2. HUMIRA 40 MG/0.8 ML PEN [Suspect]
     Route: 058
     Dates: start: 201112, end: 201202
  3. CARVEDILOL [Concomitant]
     Indication: CARDIAC DISORDER
  4. LORSARTAN [Concomitant]
     Indication: CARDIAC DISORDER
  5. SPIRALACTONE [Concomitant]
     Indication: CARDIAC DISORDER
  6. CYMBALTA [Concomitant]
     Indication: PAIN
  7. SULFASALAZINE [Concomitant]
     Indication: RHEUMATOID ARTHRITIS
  8. ASPIRIN [Concomitant]
     Indication: CARDIAC DISORDER
  9. PRIMIDONE [Concomitant]
     Indication: TREMOR
  10. MELOXICAM [Concomitant]
     Indication: RHEUMATOID ARTHRITIS

REACTIONS (2)
  - Tremor [Not Recovered/Not Resolved]
  - Drug ineffective [Not Recovered/Not Resolved]
